FAERS Safety Report 5190553-0 (Version None)
Quarter: 2006Q4

REPORT INFORMATION
  Report Type: 
  Country: None (occurrence: None)
  Receive Date: 20061222
  Receipt Date: 20060214
  Transmission Date: 20070319
  Serious: No
  Sender: FDA-Public Use
  Company Number: US-BRISTOL-MYERS SQUIBB COMPANY-13283346

PATIENT
  Age: 64 Year
  Sex: Female
  Weight: 61 kg

DRUGS (4)
  1. KENALOG [Suspect]
     Indication: ECZEMA
     Route: 061
     Dates: start: 20060101
  2. LISINOPRIL [Concomitant]
  3. ATENOLOL [Concomitant]
  4. HYDROCHLOROTHIAZIDE [Concomitant]

REACTIONS (1)
  - DRUG INEFFECTIVE [None]
